FAERS Safety Report 16896047 (Version 1)
Quarter: 2019Q4

REPORT INFORMATION
  Report Type: Spontaneous
  Country: US (occurrence: US)
  Receive Date: 20191008
  Receipt Date: 20191008
  Transmission Date: 20200122
  Serious: Yes (Other)
  Sender: FDA-Public Use
  Company Number: US-ELI_LILLY_AND_COMPANY-US201909013548

PATIENT
  Sex: Male

DRUGS (15)
  1. CIALIS [Suspect]
     Active Substance: TADALAFIL
     Dosage: 20 MG, FIVE PER WEEK
     Route: 048
     Dates: start: 20140915, end: 20161109
  2. CIALIS [Suspect]
     Active Substance: TADALAFIL
     Dosage: 20 MG, THREE PER WEEK
     Route: 048
     Dates: start: 20170525, end: 20171012
  3. PROTONIX [OMEPRAZOLE] [Concomitant]
     Active Substance: OMEPRAZOLE
     Indication: GASTROOESOPHAGEAL REFLUX DISEASE
     Dosage: UNK, UNKNOWN
     Route: 065
     Dates: start: 2012
  4. PLAQUENIL S [Concomitant]
     Active Substance: HYDROXYCHLOROQUINE SULFATE
     Indication: FIBROMYALGIA
  5. CIALIS [Suspect]
     Active Substance: TADALAFIL
     Dosage: 20 MG, THREE PER WEEK
     Route: 048
     Dates: start: 20160428, end: 20180502
  6. PREDNISONE. [Concomitant]
     Active Substance: PREDNISONE
     Indication: RHEUMATOID ARTHRITIS
     Dosage: UNK, UNKNOWN
     Route: 065
     Dates: start: 2013
  7. CIALIS [Suspect]
     Active Substance: TADALAFIL
     Dosage: 20 MG, FIVE PER WEEK
     Route: 048
     Dates: start: 20130204, end: 20130819
  8. WELLBUTRIN [Concomitant]
     Active Substance: BUPROPION HYDROCHLORIDE
     Indication: STRESS
     Dosage: UNK, UNKNOWN
     Route: 065
     Dates: start: 2007
  9. AMBIEN [Concomitant]
     Active Substance: ZOLPIDEM TARTRATE
     Indication: INSOMNIA
  10. PROVIGIL [CHORIONIC GONADOTROPHIN] [Concomitant]
     Active Substance: GONADOTROPHIN, CHORIONIC
     Indication: NARCOLEPSY
     Dosage: UNK, UNKNOWN
     Route: 065
     Dates: start: 2018
  11. PLAQUENIL S [Concomitant]
     Active Substance: HYDROXYCHLOROQUINE SULFATE
     Indication: RHEUMATOID ARTHRITIS
     Dosage: UNK, UNKNOWN
     Route: 065
     Dates: start: 2013
  12. PREDNISONE. [Concomitant]
     Active Substance: PREDNISONE
     Indication: FIBROMYALGIA
  13. CIALIS [Suspect]
     Active Substance: TADALAFIL
     Indication: ERECTILE DYSFUNCTION
     Dosage: 10 MG, FIVE PER WEEK
     Route: 048
     Dates: start: 20120703
  14. TRAMADOL. [Concomitant]
     Active Substance: TRAMADOL
     Indication: FASCIITIS
     Dosage: UNK, UNKNOWN
     Route: 065
     Dates: start: 2012
  15. AMBIEN [Concomitant]
     Active Substance: ZOLPIDEM TARTRATE
     Indication: STRESS
     Dosage: UNK, UNKNOWN
     Route: 065
     Dates: start: 2009

REACTIONS (1)
  - Malignant melanoma [Unknown]

NARRATIVE: CASE EVENT DATE: 201511
